FAERS Safety Report 22090682 (Version 1)
Quarter: 2023Q1

REPORT INFORMATION
  Report Type: Spontaneous
  Country: US (occurrence: US)
  Receive Date: 20230313
  Receipt Date: 20230313
  Transmission Date: 20230418
  Serious: Yes (Death, Hospitalization, Other)
  Sender: FDA-Public Use
  Company Number: None

PATIENT
  Age: 44 Year
  Sex: Female

DRUGS (10)
  1. TOPIRAMATE [Suspect]
     Active Substance: TOPIRAMATE
     Indication: Status epilepticus
  2. LAMOTRIGINE [Concomitant]
     Active Substance: LAMOTRIGINE
     Indication: Status epilepticus
  3. LEVETIRACETAM [Concomitant]
     Active Substance: LEVETIRACETAM
     Indication: Status epilepticus
  4. PERAMPANEL [Concomitant]
     Active Substance: PERAMPANEL
     Indication: Status epilepticus
  5. CLOBAZAM [Concomitant]
     Active Substance: CLOBAZAM
     Indication: Status epilepticus
  6. PREGABALIN [Concomitant]
     Active Substance: PREGABALIN
     Indication: Status epilepticus
  7. CANNABIDIOL [Concomitant]
     Active Substance: CANNABIDIOL
     Indication: Status epilepticus
  8. PHENOBARBITAL [Concomitant]
     Active Substance: PHENOBARBITAL
     Indication: Status epilepticus
  9. PROPOFOL [Concomitant]
     Active Substance: PROPOFOL
  10. KETAMINE [Concomitant]
     Active Substance: KETAMINE
     Indication: Status epilepticus

REACTIONS (4)
  - Aphasia [Fatal]
  - Acute encephalitis with refractory, repetitive partial seizures [Fatal]
  - Mental status changes [Fatal]
  - Condition aggravated [None]
